FAERS Safety Report 4343070-1 (Version None)
Quarter: 2004Q2

REPORT INFORMATION
  Report Type: 
  Country: None (occurrence: None)
  Receive Date: 20040416
  Receipt Date: 20040406
  Transmission Date: 20050107
  Serious: Yes (Hospitalization)
  Sender: FDA-Public Use
  Company Number: US-JNJFOC-20040401391

PATIENT
  Age: 60 Year
  Sex: Female

DRUGS (3)
  1. DURAGESIC [Suspect]
     Indication: PAIN
     Dosage: 75 U G/HR, 1 IN 72 HOUR, TRANSDERMAL
     Route: 062
     Dates: start: 20010101, end: 20011101
  2. PERCOCET [Concomitant]
  3. LIDODERM (LIDOCAINE) [Concomitant]

REACTIONS (4)
  - AMNESIA [None]
  - GRAND MAL CONVULSION [None]
  - HEADACHE [None]
  - VOMITING [None]
